FAERS Safety Report 7956595-4 (Version None)
Quarter: 2011Q4

REPORT INFORMATION
  Report Type: 
  Country: None (occurrence: None)
  Receive Date: 20111205
  Receipt Date: 20111130
  Transmission Date: 20120403
  Serious: Yes (Death, Hospitalization)
  Sender: FDA-Public Use
  Company Number: PHHY2011JP80454

PATIENT
  Sex: Female

DRUGS (8)
  1. DIOVAN [Suspect]
     Dosage: 160 MG, QD
     Route: 048
     Dates: start: 20091120, end: 20110406
  2. CALBLOCK [Concomitant]
     Dosage: 16 MG, UNK
     Route: 048
     Dates: end: 20110406
  3. ACECOL [Concomitant]
     Dosage: 4 MG, UNK
     Route: 048
     Dates: start: 20090128, end: 20110406
  4. LIPITOR [Concomitant]
     Dosage: 10 MG, UNK
     Route: 048
     Dates: start: 20090128, end: 20110406
  5. CALBLOCK [Concomitant]
     Dosage: 8 MG, UNK
     Route: 048
     Dates: start: 20090128, end: 20110406
  6. DONEPEZIL HYDROCHLORIDE [Concomitant]
     Dosage: 5 MG, UNK
     Route: 048
     Dates: start: 20090128, end: 20110406
  7. DIOVAN [Suspect]
     Indication: HYPERTENSION
     Dosage: 80 MG, QD
     Route: 048
     Dates: start: 20090603, end: 20091119
  8. ASPIRIN [Concomitant]
     Dosage: 100 MG, UNK
     Route: 048
     Dates: start: 20090128, end: 20110406

REACTIONS (2)
  - DECUBITUS ULCER [None]
  - CARDIAC FAILURE CONGESTIVE [None]
